FAERS Safety Report 7556707-0 (Version None)
Quarter: 2011Q2

REPORT INFORMATION
  Report Type: 
  Country: None (occurrence: None)
  Receive Date: 20110620
  Receipt Date: 20110615
  Transmission Date: 20111010
  Serious: Yes (Hospitalization)
  Sender: FDA-Public Use
  Company Number: IT-PFIZER INC-2011132060

PATIENT
  Age: 67 Year
  Sex: Female

DRUGS (6)
  1. DIFLUCAN [Suspect]
     Indication: TOOTHACHE
     Dosage: UNK
     Route: 065
     Dates: start: 20110515, end: 20110529
  2. LYRICA [Concomitant]
     Route: 065
  3. ESOMEPRAZOLE SODIUM [Concomitant]
     Route: 065
  4. FLECAINIDE [Concomitant]
     Route: 065
  5. GLIBOMET [Concomitant]
     Route: 065
  6. METFORMIN [Concomitant]
     Route: 065

REACTIONS (1)
  - HYPERSENSITIVITY [None]
